FAERS Safety Report 7159991-0 (Version None)
Quarter: 2010Q4

REPORT INFORMATION
  Report Type: 
  Country: None (occurrence: None)
  Receive Date: 20101214
  Receipt Date: 20101206
  Transmission Date: 20110411
  Serious: Yes (Hospitalization, Other)
  Sender: FDA-Public Use
  Company Number: FR-GILEAD-2010-0034213

PATIENT
  Sex: Female
  Weight: 85 kg

DRUGS (5)
  1. TRUVADA [Suspect]
     Indication: HIV INFECTION
     Dates: start: 20071017
  2. KALETRA [Concomitant]
     Dates: start: 20071017
  3. BACTRIM [Concomitant]
     Dates: start: 20071017
  4. TARDYFERON B9 [Concomitant]
  5. AZT [Concomitant]

REACTIONS (3)
  - HUMAN HERPESVIRUS 8 INFECTION [None]
  - HYPOGLYCAEMIC COMA [None]
  - PREGNANCY [None]
